FAERS Safety Report 21784629 (Version 1)
Quarter: 2022Q4

REPORT INFORMATION
  Report Type: Spontaneous
  Country: JP (occurrence: JP)
  Receive Date: 20221227
  Receipt Date: 20221227
  Transmission Date: 20230113
  Serious: Yes (Other)
  Sender: FDA-Public Use
  Company Number: JP-MALLINCKRODT-T202206840

PATIENT
  Age: 78 Year

DRUGS (5)
  1. AMITIZA [Suspect]
     Active Substance: LUBIPROSTONE
     Indication: Constipation
     Dosage: UNK
     Route: 048
  2. AMITIZA [Suspect]
     Active Substance: LUBIPROSTONE
     Dosage: 24 MICROGRAM, BID
     Route: 048
     Dates: start: 20221219
  3. MAGNESIUM OXIDE [Concomitant]
     Active Substance: MAGNESIUM OXIDE
     Indication: Product used for unknown indication
     Dosage: 2 DOSAGE FORM, DAILY
     Route: 048
  4. EQUMET HD [Concomitant]
     Indication: Diabetes mellitus
     Dosage: UNK
     Route: 048
  5. METGLUCO [Concomitant]
     Active Substance: METFORMIN HYDROCHLORIDE
     Indication: Diabetes mellitus
     Dosage: UNK
     Route: 048

REACTIONS (6)
  - Osteonecrosis [Unknown]
  - Spinal osteoarthritis [Unknown]
  - Physical deconditioning [Unknown]
  - Musculoskeletal stiffness [Unknown]
  - Diarrhoea [Unknown]
  - Drug ineffective [Unknown]

NARRATIVE: CASE EVENT DATE: 20221221
